FAERS Safety Report 4912301-9 (Version None)
Quarter: 2006Q1

REPORT INFORMATION
  Report Type: 
  Country: None (occurrence: None)
  Receive Date: 20060213
  Receipt Date: 20060130
  Transmission Date: 20060701
  Serious: Yes (Other)
  Sender: FDA-Public Use
  Company Number: 2006BH002702

PATIENT
  Age: 7 Year
  Sex: Female

DRUGS (2)
  1. PHENYTOIN [Suspect]
     Dosage: IV
     Route: 042
  2. ISOPRENALINE HCL [Suspect]

REACTIONS (2)
  - SUPRAVENTRICULAR TACHYCARDIA [None]
  - VENTRICULAR TACHYCARDIA [None]
